FAERS Safety Report 11928685 (Version 1)
Quarter: 2016Q1

REPORT INFORMATION
  Report Type: Report from Study
  Country: US (occurrence: US)
  Receive Date: 20160119
  Receipt Date: 20160119
  Transmission Date: 20160526
  Serious: Yes (Hospitalization, Other)
  Sender: FDA-Public Use
  Company Number: US-GILEAD-2016-0192505

PATIENT
  Age: 35 Year
  Sex: Female

DRUGS (4)
  1. AZTREONAM LYSINE [Suspect]
     Active Substance: AZTREONAM LYSINE
     Indication: CYSTIC FIBROSIS LUNG
  2. AZTREONAM LYSINE [Suspect]
     Active Substance: AZTREONAM LYSINE
     Indication: PSEUDOMONAS INFECTION
     Dosage: 75 MG, UNK
     Route: 055
     Dates: start: 20150630, end: 20151222
  3. CEFTAZIDIME. [Concomitant]
     Active Substance: CEFTAZIDIME
  4. TOBI [Concomitant]
     Active Substance: TOBRAMYCIN
     Route: 041

REACTIONS (1)
  - Pneumonia [Unknown]
